FAERS Safety Report 5301661-5 (Version None)
Quarter: 2007Q2

REPORT INFORMATION
  Report Type: 
  Country: None (occurrence: None)
  Receive Date: 20070419
  Receipt Date: 20070417
  Transmission Date: 20071010
  Serious: Yes (Other)
  Sender: FDA-Public Use
  Company Number: US-BRISTOL-MYERS SQUIBB COMPANY-13750492

PATIENT

DRUGS (1)
  1. DEFINITY [Suspect]

REACTIONS (1)
  - THROAT TIGHTNESS [None]
